FAERS Safety Report 9023694 (Version 1)
Quarter: 2013Q1

REPORT INFORMATION
  Report Type: Spontaneous
  Country: DE (occurrence: CA)
  Receive Date: 20130121
  Receipt Date: 20130121
  Transmission Date: 20140127
  Serious: Yes (Hospitalization)
  Sender: FDA-Public Use
  Company Number: CA-FRI-1000041800

PATIENT
  Age: 78 None
  Sex: Female

DRUGS (1)
  1. ROFLUMILAST [Suspect]
     Dosage: 500 MCG
     Dates: start: 20121009, end: 20121018

REACTIONS (1)
  - Hip fracture [Recovering/Resolving]
